FAERS Safety Report 10455901 (Version 1)
Quarter: 2014Q3

REPORT INFORMATION
  Report Type: Spontaneous
  Country: US (occurrence: None)
  Receive Date: 20140912
  Receipt Date: 20140912
  Transmission Date: 20150326
  Serious: Yes (Other)
  Sender: FDA-Public Use
  Company Number: 2521269

PATIENT
  Age: 29 Year
  Sex: Female
  Weight: 78.5 kg

DRUGS (3)
  1. MAGNESIUM SULFATE [Suspect]
     Active Substance: MAGNESIUM SULFATE
     Indication: FOETAL DISORDER
     Route: 041
     Dates: start: 20140828, end: 20140829
  2. MAGNESIUM SULFATE [Suspect]
     Active Substance: MAGNESIUM SULFATE
     Indication: TOCOLYSIS
     Route: 041
     Dates: start: 20140828, end: 20140829
  3. (CELESTONE PREMATURE LABOR (PREMATURE LABOUR) [Concomitant]

REACTIONS (6)
  - Chest pain [None]
  - Vision blurred [None]
  - Headache [None]
  - Oral discomfort [None]
  - Skin discolouration [None]
  - Maternal exposure timing unspecified [None]

NARRATIVE: CASE EVENT DATE: 20140829
